FAERS Safety Report 10023154 (Version 1)
Quarter: 2014Q1

REPORT INFORMATION
  Report Type: Report from Study
  Country: CN (occurrence: CN)
  Receive Date: 20140320
  Receipt Date: 20140320
  Transmission Date: 20141002
  Serious: Yes (Other)
  Sender: FDA-Public Use
  Company Number: CN-ROCHE-1364845

PATIENT
  Sex: Female
  Weight: 52.5 kg

DRUGS (5)
  1. CELLCEPT [Suspect]
     Indication: SYSTEMIC LUPUS ERYTHEMATOSUS
     Route: 048
     Dates: start: 201211, end: 201303
  2. CELLCEPT [Suspect]
     Route: 048
     Dates: start: 201303, end: 201310
  3. CELLCEPT [Suspect]
     Route: 048
     Dates: start: 201310, end: 201403
  4. CELLCEPT [Suspect]
     Route: 048
     Dates: start: 201403
  5. PROGRAF [Concomitant]
     Indication: SYSTEMIC LUPUS ERYTHEMATOSUS
     Route: 048
     Dates: start: 201403

REACTIONS (3)
  - Proteinuria [Not Recovered/Not Resolved]
  - Blood albumin decreased [Not Recovered/Not Resolved]
  - Drug ineffective [Unknown]
